FAERS Safety Report 9087156 (Version 3)
Quarter: 2013Q1

REPORT INFORMATION
  Report Type: Report from Study
  Country: US (occurrence: US)
  Receive Date: 20130131
  Receipt Date: 20130325
  Transmission Date: 20140127
  Serious: Yes (Hospitalization)
  Sender: FDA-Public Use
  Company Number: US-ROCHE-1185455

PATIENT
  Age: 50 Year
  Sex: Female

DRUGS (9)
  1. PEGASYS [Suspect]
     Indication: CHRONIC HEPATITIS C
     Route: 065
     Dates: start: 20120323, end: 20130301
  2. VICTRELIS [Suspect]
     Indication: CHRONIC HEPATITIS C
     Route: 048
     Dates: start: 20120323, end: 20130114
  3. RIBASPHERE [Suspect]
     Indication: CHRONIC HEPATITIS C
     Dosage: DIVIDED DOSES
     Route: 065
     Dates: start: 20121206, end: 20130301
  4. RIBASPHERE [Suspect]
     Route: 065
     Dates: start: 20120427
  5. RIBASPHERE [Suspect]
     Route: 065
  6. TELAPREVIR [Suspect]
     Indication: CHRONIC HEPATITIS C
     Route: 065
     Dates: start: 20120323, end: 20120617
  7. SYNTHROID [Concomitant]
  8. ASPIRIN [Concomitant]
     Route: 065
  9. AMBIEN [Concomitant]
     Route: 065

REACTIONS (13)
  - Oxygen saturation abnormal [Recovered/Resolved]
  - Pneumonia [Unknown]
  - Asthenia [Unknown]
  - Fatigue [Unknown]
  - Nasopharyngitis [Unknown]
  - Cough [Unknown]
  - Dyspnoea [Unknown]
  - Fatigue [Unknown]
  - Dry skin [Unknown]
  - Insomnia [Unknown]
  - Arthralgia [Unknown]
  - Nightmare [Unknown]
  - Hallucination [Unknown]
